FAERS Safety Report 8869289 (Version 1)
Quarter: 2012Q4

REPORT INFORMATION
  Report Type: 
  Country: US (occurrence: US)
  Receive Date: 20121023
  Receipt Date: 20121023
  Transmission Date: 20130627
  Serious: No
  Sender: FDA-Public Use
  Company Number: US-AMGEN-USASP2012052973

PATIENT
  Age: 55 Year
  Sex: Female
  Weight: 85.45 kg

DRUGS (5)
  1. ENBREL [Suspect]
     Indication: PRODUCT USED FOR UNKNOWN INDICATION
     Dosage: 50 mg, qwk
     Route: 058
  2. ENBREL [Suspect]
  3. METHOTREXATE [Concomitant]
     Dosage: 2.5 mg, UNK
  4. VICODIN [Concomitant]
     Dosage: 5-500 mg
  5. LEVOTHYROXIN [Concomitant]
     Dosage: 100 mug, UNK

REACTIONS (3)
  - Therapeutic response decreased [Unknown]
  - Pain in extremity [Unknown]
  - Arthralgia [Unknown]
